FAERS Safety Report 5812763-9 (Version None)
Quarter: 2008Q3

REPORT INFORMATION
  Report Type: 
  Country: None (occurrence: None)
  Receive Date: 20080714
  Receipt Date: 20080714
  Transmission Date: 20090109
  Serious: Yes (Hospitalization)
  Sender: FDA-Public Use
  Company Number: None

PATIENT
  Sex: Male
  Weight: 69.3 kg

DRUGS (1)
  1. CISPLATIN [Suspect]
     Dosage: 196 MG
     Dates: end: 20080617

REACTIONS (9)
  - DEHYDRATION [None]
  - DIZZINESS [None]
  - MALAISE [None]
  - MUCOSAL INFLAMMATION [None]
  - NEUTROPENIA [None]
  - ODYNOPHAGIA [None]
  - ORAL PAIN [None]
  - PAIN [None]
  - WHITE BLOOD CELL COUNT DECREASED [None]
